FAERS Safety Report 12075098 (Version 7)
Quarter: 2016Q2

REPORT INFORMATION
  Report Type: Spontaneous
  Country: US (occurrence: US)
  Receive Date: 20160212
  Receipt Date: 20160606
  Transmission Date: 20160815
  Serious: Yes (Death, Hospitalization, Other)
  Sender: FDA-Public Use
  Company Number: US-CELGENEUS-USA-2016021997

PATIENT
  Age: 87 Year
  Sex: Female
  Weight: 62.65 kg

DRUGS (9)
  1. HYDROXYZINE HCL [Concomitant]
     Active Substance: HYDROXYZINE HYDROCHLORIDE
     Indication: PRODUCT USED FOR UNKNOWN INDICATION
     Dosage: 10
     Route: 065
  2. ZOFRAN [Concomitant]
     Active Substance: ONDANSETRON HYDROCHLORIDE
     Indication: PRODUCT USED FOR UNKNOWN INDICATION
     Route: 065
  3. REVLIMID [Suspect]
     Active Substance: LENALIDOMIDE
     Indication: DIFFUSE LARGE B-CELL LYMPHOMA
     Route: 048
     Dates: start: 20151201
  4. ACETAMINOPHEN\HYDROCODONE BITARTRATE [Concomitant]
     Active Substance: ACETAMINOPHEN\HYDROCODONE BITARTRATE
     Indication: PRODUCT USED FOR UNKNOWN INDICATION
     Route: 065
  5. COUMADIN [Concomitant]
     Active Substance: WARFARIN SODIUM
     Indication: PRODUCT USED FOR UNKNOWN INDICATION
     Route: 065
  6. CORTISPORIN [Concomitant]
     Active Substance: BACITRACIN ZINC\HYDROCORTISONE\NEOMYCIN SULFATE\POLYMYXIN B SULFATE
     Indication: PRODUCT USED FOR UNKNOWN INDICATION
     Route: 065
  7. LOVENOX [Concomitant]
     Active Substance: ENOXAPARIN SODIUM
     Indication: PRODUCT USED FOR UNKNOWN INDICATION
     Dosage: 60MG/.6M
     Route: 065
  8. HYDROCODONE [Concomitant]
     Active Substance: HYDROCODONE
     Indication: PRODUCT USED FOR UNKNOWN INDICATION
     Dosage: .5 PERCENT
     Route: 065
  9. REVLIMID [Suspect]
     Active Substance: LENALIDOMIDE
     Dosage: 10 MILLIGRAM
     Route: 048
     Dates: start: 201604

REACTIONS (28)
  - Splenomegaly [Unknown]
  - Hepatic failure [Unknown]
  - Nausea [Unknown]
  - Diarrhoea [Unknown]
  - Renal failure [Unknown]
  - Dyspnoea [Unknown]
  - Gout [Unknown]
  - Pneumothorax [Unknown]
  - Tumour lysis syndrome [Unknown]
  - Splenic vein thrombosis [Unknown]
  - Pruritus generalised [Unknown]
  - Fatigue [Unknown]
  - Pyrexia [Unknown]
  - Abdominal pain [Unknown]
  - Death [Fatal]
  - Haemorrhage [Unknown]
  - Deep vein thrombosis [Unknown]
  - Vomiting [Unknown]
  - Haemoglobin decreased [Unknown]
  - Irritable bowel syndrome [Unknown]
  - Heart rate irregular [Unknown]
  - Platelet count decreased [Unknown]
  - Rash [Unknown]
  - Dizziness [Unknown]
  - Weight decreased [Unknown]
  - Dehydration [Unknown]
  - Oedema peripheral [Unknown]
  - Fall [Unknown]

NARRATIVE: CASE EVENT DATE: 20160515
